FAERS Safety Report 9039190 (Version 1)
Quarter: 2013Q1

REPORT INFORMATION
  Report Type: Spontaneous
  Country: US (occurrence: None)
  Receive Date: 20130123
  Receipt Date: 20130123
  Transmission Date: 20140127
  Serious: No
  Sender: FDA-Public Use
  Company Number: None

PATIENT
  Age: 19 Year
  Sex: Male
  Weight: 76.7 kg

DRUGS (1)
  1. RISPERDAL [Suspect]
     Route: 048
     Dates: start: 20121116, end: 20121120

REACTIONS (3)
  - Musculoskeletal stiffness [None]
  - Dysstasia [None]
  - Jaw disorder [None]
